FAERS Safety Report 11095496 (Version 1)
Quarter: 2015Q2

REPORT INFORMATION
  Report Type: Report from Study
  Country: AU (occurrence: AU)
  Receive Date: 20150506
  Receipt Date: 20150506
  Transmission Date: 20150821
  Serious: Yes (Hospitalization)
  Sender: FDA-Public Use
  Company Number: AU-ABBVIE-14P-008-1292672-00

PATIENT
  Age: 64 Year
  Sex: Female

DRUGS (5)
  1. DUODOPA [Suspect]
     Active Substance: CARBIDOPA\LEVODOPA
     Dosage: INCREASED MD TO 10.5ML AND CR TO 3.2
     Route: 050
     Dates: start: 20141015, end: 20141025
  2. SYMMETREL [Concomitant]
     Active Substance: AMANTADINE HYDROCHLORIDE
     Indication: PRODUCT USED FOR UNKNOWN INDICATION
     Dates: start: 201412
  3. DUODOPA [Suspect]
     Active Substance: CARBIDOPA\LEVODOPA
     Indication: PRODUCT USED FOR UNKNOWN INDICATION
     Route: 050
     Dates: start: 20140930
  4. DUODOPA [Suspect]
     Active Substance: CARBIDOPA\LEVODOPA
     Dosage: DECREASE CR TO 3.0ML. ADVISED TO TURN PUMP OFF FOR 20MINS IN
     Route: 050
     Dates: start: 20141025, end: 20150207
  5. DUODOPA [Suspect]
     Active Substance: CARBIDOPA\LEVODOPA
     Dosage: MD 10ML, CR 2.8ML/HR, ED 1ML
     Route: 050
     Dates: start: 20150207

REACTIONS (20)
  - Hypokinesia [Unknown]
  - Device dislocation [Unknown]
  - Dyskinesia [Unknown]
  - Unevaluable event [Unknown]
  - Pain [Unknown]
  - On and off phenomenon [Not Recovered/Not Resolved]
  - Drug effect incomplete [Unknown]
  - Contusion [Unknown]
  - Stoma site rash [Unknown]
  - Device connection issue [Unknown]
  - Catheter site swelling [Recovering/Resolving]
  - Catheter site discharge [Recovering/Resolving]
  - Pain in extremity [Unknown]
  - Fall [Unknown]
  - Stoma site pain [Unknown]
  - Gait disturbance [Unknown]
  - Catheter site discharge [Unknown]
  - On and off phenomenon [Recovering/Resolving]
  - Dyskinesia [Recovering/Resolving]
  - Drug ineffective [Unknown]

NARRATIVE: CASE EVENT DATE: 20141012
